FAERS Safety Report 4886427-2 (Version None)
Quarter: 2006Q1

REPORT INFORMATION
  Report Type: 
  Country: None (occurrence: None)
  Receive Date: 20060118
  Receipt Date: 20060106
  Transmission Date: 20060701
  Serious: Yes (Other)
  Sender: FDA-Public Use
  Company Number: 2006006038

PATIENT
  Sex: Male
  Weight: 136.0791 kg

DRUGS (11)
  1. CELEBREX [Suspect]
     Indication: ARTHRALGIA
     Dosage: 200 MG
     Dates: end: 20051201
  2. LEVOTHROID [Concomitant]
  3. LASIX [Concomitant]
  4. DIOVAN ^CIBA-GEIGY^ (VALSARTAN) [Concomitant]
  5. K-DUR 10 [Concomitant]
  6. VITAMIN E [Concomitant]
  7. AMARYL [Concomitant]
  8. VITAMIN C (VITAMIN C) [Concomitant]
  9. NASONEX [Concomitant]
  10. OTHER DERMATOLOGICAL PREPARATIONS (OTHER DERMATOLOGICAL PREPARATIONS) [Concomitant]
  11. BETAMETHASONE DIPROPIONATE (BETAMETHASONE DIPROPRIONATE) [Concomitant]

REACTIONS (1)
  - SKIN CANCER [None]
